FAERS Safety Report 10419385 (Version 3)
Quarter: 2015Q1

REPORT INFORMATION
  Report Type: Spontaneous
  Country: DK (occurrence: DK)
  Receive Date: 20140829
  Receipt Date: 20150323
  Transmission Date: 20150720
  Serious: Yes (Hospitalization, Disabling, Other)
  Sender: FDA-Public Use
  Company Number: DK-ELI_LILLY_AND_COMPANY-DK201408007929

PATIENT
  Age: 61 Year
  Sex: Female
  Weight: 59 kg

DRUGS (13)
  1. DIAZEPAN [Concomitant]
     Dosage: 5 MG, TID
     Route: 048
  2. PRADAXA [Concomitant]
     Active Substance: DABIGATRAN ETEXILATE MESYLATE
     Dosage: UNK, UNKNOWN
     Route: 065
  3. APIXABAN [Concomitant]
     Active Substance: APIXABAN
     Dosage: UNK, UNKNOWN
     Route: 065
  4. SYMBICORT [Concomitant]
     Active Substance: BUDESONIDE\FORMOTEROL FUMARATE DIHYDRATE
     Indication: DYSPNOEA
     Dosage: 1 DF, BID
     Route: 055
  5. DOLOL                              /00599201/ [Concomitant]
     Dosage: 100 MG, QD
     Route: 048
  6. THIAMIN [Concomitant]
     Active Substance: THIAMINE
     Dosage: UNK, UNKNOWN
     Route: 048
  7. ZYPREXA [Suspect]
     Active Substance: OLANZAPINE
     Dosage: 25 MG, EACH EVENING
     Dates: end: 20140129
  8. LYSANTIN [Concomitant]
     Active Substance: ORPHENADRINE HYDROCHLORIDE
     Dosage: UNK, UNKNOWN
     Route: 048
  9. ZYPREXA [Suspect]
     Active Substance: OLANZAPINE
     Indication: PARANOIA
     Dosage: 30 MG, QD
     Route: 048
     Dates: start: 2003
  10. BRICANYL [Concomitant]
     Active Substance: TERBUTALINE SULFATE
     Indication: DYSPNOEA
     Dosage: UNK, UNKNOWN
     Route: 055
  11. ALENDRONATE [Concomitant]
     Active Substance: ALENDRONATE SODIUM
     Indication: OSTEOPOROSIS
     Dosage: 70 MG, WEEKLY (1/W)
     Route: 048
  12. METHADONE [Concomitant]
     Active Substance: METHADONE HYDROCHLORIDE
     Indication: DRUG ABUSE
     Dosage: UNK, UNKNOWN
     Route: 048
     Dates: start: 19800807
  13. CITALOPRAM [Concomitant]
     Active Substance: CITALOPRAM HYDROBROMIDE
     Indication: DEPRESSION
     Dosage: UNK, UNKNOWN
     Route: 048

REACTIONS (31)
  - Dyspnoea [Not Recovered/Not Resolved]
  - Thrombosis [Recovered/Resolved with Sequelae]
  - Sensory disturbance [Not Recovered/Not Resolved]
  - Insomnia [Recovering/Resolving]
  - Headache [Recovering/Resolving]
  - Confusional state [Recovering/Resolving]
  - Rash pruritic [Not Recovered/Not Resolved]
  - Dyspnoea [Unknown]
  - Chronic obstructive pulmonary disease [Unknown]
  - Dyspnoea [Unknown]
  - Dizziness [Recovering/Resolving]
  - Hemiparesis [Not Recovered/Not Resolved]
  - Dyspnoea exertional [Unknown]
  - Akathisia [Recovered/Resolved]
  - Agitation [Unknown]
  - Disorientation [Unknown]
  - Peroneal nerve palsy [Not Recovered/Not Resolved]
  - Cerebral thrombosis [Recovered/Resolved with Sequelae]
  - Dyspnoea [Unknown]
  - Dizziness [Unknown]
  - Anxiety [Recovered/Resolved]
  - Pulmonary embolism [Recovered/Resolved with Sequelae]
  - Restlessness [Recovered/Resolved]
  - Prescribed overdose [Unknown]
  - Pulmonary embolism [Recovered/Resolved with Sequelae]
  - Dyspnoea exertional [Unknown]
  - Gingival pain [Not Recovered/Not Resolved]
  - Visual acuity reduced [Not Recovered/Not Resolved]
  - Constipation [Unknown]
  - Thrombosis [Recovered/Resolved]
  - Pain in extremity [Recovered/Resolved]

NARRATIVE: CASE EVENT DATE: 2007
